FAERS Safety Report 10025422 (Version 1)
Quarter: 2014Q1

REPORT INFORMATION
  Report Type: Spontaneous
  Country: US (occurrence: None)
  Receive Date: 20140304
  Receipt Date: 20140304
  Transmission Date: 20141002
  Serious: Yes (Death)
  Sender: FDA-Public Use
  Company Number: RB-50303-2013

PATIENT
  Age: 29 Year
  Sex: Female

DRUGS (3)
  1. SUBOXONE [Suspect]
     Indication: DRUG DEPENDENCE
  2. XANAX (NOT SPECIFIED) [Suspect]
     Indication: PRODUCT USED FOR UNKNOWN INDICATION
     Dates: end: 20130212
  3. HEROIN [Suspect]
     Indication: SUBSTANCE USE
     Dosage: ?
     Dates: end: 20130212

REACTIONS (2)
  - Overdose [None]
  - Drug diversion [None]
